FAERS Safety Report 14665582 (Version 1)
Quarter: 2018Q1

REPORT INFORMATION
  Report Type: Report from Study
  Country: US (occurrence: US)
  Receive Date: 20180321
  Receipt Date: 20180321
  Transmission Date: 20180509
  Serious: Yes (Other)
  Sender: FDA-Public Use
  Company Number: US-ACTELION-A-NJ2018-165451

PATIENT
  Age: 55 Year
  Sex: Female
  Weight: 52.15 kg

DRUGS (3)
  1. UPTRAVI [Suspect]
     Active Substance: SELEXIPAG
     Dosage: 600 MCG, BID
     Route: 048
  2. UPTRAVI [Suspect]
     Active Substance: SELEXIPAG
     Indication: PULMONARY HYPERTENSION
     Dosage: 800 MCG, BID
     Route: 048
  3. REVATIO [Concomitant]
     Active Substance: SILDENAFIL CITRATE

REACTIONS (8)
  - Dyspnoea [Unknown]
  - Loss of personal independence in daily activities [Unknown]
  - Disease progression [Unknown]
  - Headache [Recovering/Resolving]
  - Diarrhoea [Recovering/Resolving]
  - Sinus congestion [Recovering/Resolving]
  - Oxygen saturation decreased [Unknown]
  - Liver disorder [Unknown]
